FAERS Safety Report 12002750 (Version 1)
Quarter: 2016Q1

REPORT INFORMATION
  Report Type: Report from Study
  Country: IN (occurrence: IN)
  Receive Date: 20160204
  Receipt Date: 20160204
  Transmission Date: 20160526
  Serious: Yes (Death)
  Sender: FDA-Public Use
  Company Number: PHHY2016IN015126

PATIENT
  Age: 16 Year
  Sex: Male
  Weight: 30 kg

DRUGS (1)
  1. ASUNRA [Suspect]
     Active Substance: DEFERASIROX
     Indication: THALASSAEMIA
     Dosage: 400 MG, UNK
     Route: 048
     Dates: start: 2010

REACTIONS (1)
  - Cardiac failure [Fatal]

NARRATIVE: CASE EVENT DATE: 20150614
